FAERS Safety Report 7772801-3 (Version None)
Quarter: 2011Q3

REPORT INFORMATION
  Report Type: 
  Country: None (occurrence: None)
  Receive Date: 20110922
  Receipt Date: 20110418
  Transmission Date: 20111222
  Serious: Yes (Other)
  Sender: FDA-Public Use
  Company Number: US-ASTRAZENECA-2007UW05889

PATIENT
  Sex: Male
  Weight: 164.2 kg

DRUGS (8)
  1. PROTONIX [Concomitant]
     Dates: start: 20050101
  2. TRAZODONE HYDROCHLORIDE [Concomitant]
     Dosage: 100 MG 3-4 QD
     Dates: start: 20050101
  3. SEROQUEL [Suspect]
     Indication: SLEEP DISORDER
     Dosage: 200 TO 1500 MG
     Route: 048
     Dates: start: 20010406
  4. SEROQUEL [Suspect]
     Dosage: 300 MG 5 QD
     Route: 048
     Dates: start: 20050101
  5. SONATA [Concomitant]
     Dates: start: 20050101
  6. CLOZAPINE [Concomitant]
  7. SEROQUEL [Suspect]
     Indication: PANIC DISORDER
     Dosage: 200 TO 1500 MG
     Route: 048
     Dates: start: 20010406
  8. SEROQUEL [Suspect]
     Dosage: 300 MG 5 QD
     Route: 048
     Dates: start: 20050101

REACTIONS (6)
  - KETOACIDOSIS [None]
  - BLOOD CHOLESTEROL INCREASED [None]
  - BLOOD TRIGLYCERIDES INCREASED [None]
  - PANCREATITIS [None]
  - HYPERLIPIDAEMIA [None]
  - TYPE 2 DIABETES MELLITUS [None]
